FAERS Safety Report 9337118 (Version 1)
Quarter: 2013Q2

REPORT INFORMATION
  Report Type: Spontaneous
  Country: US (occurrence: US)
  Receive Date: 20130607
  Receipt Date: 20130607
  Transmission Date: 20140414
  Serious: No
  Sender: FDA-Public Use
  Company Number: US-TEVA-410364USA

PATIENT
  Sex: Female
  Weight: 54.03 kg

DRUGS (2)
  1. NUVIGIL [Suspect]
     Indication: NARCOLEPSY
  2. SYNTHROID [Concomitant]
     Indication: THYROID DISORDER

REACTIONS (5)
  - Nasal congestion [Recovered/Resolved]
  - Oral pain [Unknown]
  - Glossodynia [Unknown]
  - Lip dry [Unknown]
  - Insomnia [Unknown]
